FAERS Safety Report 8473971-4 (Version None)
Quarter: 2012Q2

REPORT INFORMATION
  Report Type: 
  Country: None (occurrence: None)
  Receive Date: 20120628
  Receipt Date: 20120416
  Transmission Date: 20120825
  Serious: Yes (Other)
  Sender: FDA-Public Use
  Company Number: US-MYLANLABS-2012S1004702

PATIENT
  Age: 14 Year
  Sex: Male
  Weight: 68.04 kg

DRUGS (4)
  1. SEROQUEL [Concomitant]
     Indication: BIPOLAR DISORDER
     Route: 048
  2. DIVALPROEX SODIUM [Concomitant]
  3. CLOZAPINE [Suspect]
     Indication: BIPOLAR DISORDER
     Route: 048
     Dates: start: 20120201, end: 20120302
  4. CLOZAPINE [Suspect]
     Route: 048
     Dates: start: 20120306, end: 20120310

REACTIONS (1)
  - GRANULOCYTOPENIA [None]
